FAERS Safety Report 24367296 (Version 1)
Quarter: 2024Q3

REPORT INFORMATION
  Report Type: Spontaneous
  Country: KR (occurrence: KR)
  Receive Date: 20240926
  Receipt Date: 20240926
  Transmission Date: 20241016
  Serious: No
  Sender: PFIZER
  Company Number: KR-PFIZER INC-PV202400124433

PATIENT
  Age: 11 Year
  Sex: Male

DRUGS (1)
  1. GENOTROPIN [Suspect]
     Active Substance: SOMATROPIN
     Dosage: 4 IU, 6 TIMES A WEEK
     Dates: start: 202409

REACTIONS (3)
  - Device delivery system issue [Unknown]
  - Incorrect dose administered by device [Unknown]
  - Poor quality device used [Unknown]

NARRATIVE: CASE EVENT DATE: 20240921
